FAERS Safety Report 14630432 (Version 1)
Quarter: 2018Q1

REPORT INFORMATION
  Report Type: Spontaneous
  Country: US (occurrence: US)
  Receive Date: 20180313
  Receipt Date: 20180313
  Transmission Date: 20180509
  Serious: No
  Sender: FDA-Public Use
  Company Number: None

PATIENT
  Age: 55 Year
  Sex: Male

DRUGS (1)
  1. MYCOPHENOLATE MOF TAB 500MG [Suspect]
     Active Substance: MYCOPHENOLATE MOFETIL

REACTIONS (6)
  - Vomiting [None]
  - Nausea [None]
  - Memory impairment [None]
  - Drug dose omission [None]
  - Influenza like illness [None]
  - Malaise [None]

NARRATIVE: CASE EVENT DATE: 20180310
